FAERS Safety Report 8133298-7 (Version None)
Quarter: 2012Q1

REPORT INFORMATION
  Report Type: 
  Country: None (occurrence: None)
  Receive Date: 20120213
  Receipt Date: 20120210
  Transmission Date: 20120608
  Serious: No
  Sender: FDA-Public Use
  Company Number: US-JNJFOC-2010001481

PATIENT
  Sex: Female

DRUGS (2)
  1. EXTRA STRENGTH TYLENOL [Suspect]
     Indication: PRODUCT USED FOR UNKNOWN INDICATION
     Dosage: DAILY DOSE TEXT: UNSPECIFIED
     Route: 065
  2. ROLAIDS TAB [Suspect]
     Indication: ABDOMINAL PAIN UPPER
     Dosage: DAILY DOSE TEXT: ONE TO TWO TABLETS 3-4 TIMES PER DAY
     Route: 048

REACTIONS (1)
  - GASTRIC DISORDER [None]
